FAERS Safety Report 8947106 (Version 1)
Quarter: 2012Q4

REPORT INFORMATION
  Report Type: 
  Country: US (occurrence: US)
  Receive Date: 20121205
  Receipt Date: 20121205
  Transmission Date: 20130627
  Serious: Yes (Hospitalization)
  Sender: FDA-Public Use
  Company Number: US-PFIZER INC-2012304535

PATIENT
  Age: 39 Year
  Sex: Female
  Weight: 90.7 kg

DRUGS (1)
  1. ADVIL [Suspect]
     Indication: BACK PAIN
     Dosage: 400 mg, UNK
     Route: 048
     Dates: start: 201205, end: 201205

REACTIONS (1)
  - Hypersensitivity [Recovered/Resolved]
